FAERS Safety Report 7658628-1 (Version None)
Quarter: 2011Q3

REPORT INFORMATION
  Report Type: 
  Country: None (occurrence: None)
  Receive Date: 20110805
  Receipt Date: 20110516
  Transmission Date: 20111222
  Serious: Yes (Hospitalization, Other)
  Sender: FDA-Public Use
  Company Number: JP-RANBAXY-2011RR-45010

PATIENT
  Sex: Male

DRUGS (5)
  1. FOSFOMYCINE [Suspect]
     Indication: PYREXIA
     Route: 065
  2. MINOCYCLINE HCL [Suspect]
     Indication: PYREXIA
     Route: 065
  3. LEVOFLOXACIN [Suspect]
     Indication: PYREXIA
     Route: 065
  4. CEFDINIR [Suspect]
     Indication: PYREXIA
     Route: 065
  5. CEFAZOLIN [Suspect]
     Indication: PYREXIA
     Dosage: UNK
     Route: 065

REACTIONS (1)
  - COLITIS ULCERATIVE [None]
